FAERS Safety Report 5475012-X (Version None)
Quarter: 2007Q4

REPORT INFORMATION
  Report Type: 
  Country: None (occurrence: None)
  Receive Date: 20071002
  Receipt Date: 20070924
  Transmission Date: 20080405
  Serious: Yes (Disabling, Other)
  Sender: FDA-Public Use
  Company Number: GB-ASTRAZENECA-2007GB01983

PATIENT
  Age: 70 Year
  Sex: Male
  Weight: 70.9 kg

DRUGS (3)
  1. ROSUVASTATIN [Suspect]
     Indication: BLOOD CHOLESTEROL ABNORMAL
     Route: 048
     Dates: start: 20050515, end: 20070914
  2. CLOTRIMAZOLE [Concomitant]
     Dates: end: 20070731
  3. HYDROCORTISONE [Concomitant]
     Dates: end: 20070731

REACTIONS (2)
  - COGNITIVE DISORDER [None]
  - NIGHTMARE [None]
